FAERS Safety Report 21559944 (Version 1)
Quarter: 2022Q4

REPORT INFORMATION
  Report Type: Report from Study
  Country: EG (occurrence: EG)
  Receive Date: 20221107
  Receipt Date: 20221107
  Transmission Date: 20230112
  Serious: Yes (Other)
  Sender: FDA-Public Use
  Company Number: EG-002147023-NVSC2022EG249679

PATIENT
  Sex: Male

DRUGS (13)
  1. GILENYA [Suspect]
     Active Substance: FINGOLIMOD HYDROCHLORIDE
     Indication: Multiple sclerosis
     Dosage: 1 DOSAGE FORM, QD, PER 1 MONTH IN EACH YEAR
     Route: 048
     Dates: start: 201409, end: 201409
  2. GILENYA [Suspect]
     Active Substance: FINGOLIMOD HYDROCHLORIDE
     Dosage: 1 DOSAGE FORM, QD, PER 1 MONTH IN EACH YEAR
     Route: 048
     Dates: start: 201509, end: 201509
  3. GILENYA [Suspect]
     Active Substance: FINGOLIMOD HYDROCHLORIDE
     Dosage: 1 DOSAGE FORM, QD, PER 1 MONTH IN EACH YEAR
     Route: 048
     Dates: start: 201609, end: 201609
  4. GILENYA [Suspect]
     Active Substance: FINGOLIMOD HYDROCHLORIDE
     Dosage: 1 DOSAGE FORM, QD, PER 1 MONTH IN EACH YEAR
     Route: 048
     Dates: start: 201709, end: 201709
  5. GILENYA [Suspect]
     Active Substance: FINGOLIMOD HYDROCHLORIDE
     Dosage: 1 DOSAGE FORM, QD, PER 1 MONTH IN EACH YEAR
     Route: 048
     Dates: start: 201809, end: 201809
  6. GILENYA [Suspect]
     Active Substance: FINGOLIMOD HYDROCHLORIDE
     Dosage: 1 DOSAGE FORM, QD, PER 1 MONTH IN EACH YEAR
     Route: 048
     Dates: start: 201909, end: 201909
  7. GILENYA [Suspect]
     Active Substance: FINGOLIMOD HYDROCHLORIDE
     Dosage: 1 DOSAGE FORM, QD, PER 1 MONTH IN EACH YEAR
     Route: 048
     Dates: start: 202009, end: 202009
  8. GILENYA [Suspect]
     Active Substance: FINGOLIMOD HYDROCHLORIDE
     Dosage: 1 DOSAGE FORM, QD, PER 1 MONTH IN EACH YEAR
     Route: 048
     Dates: start: 202109, end: 202109
  9. GILENYA [Suspect]
     Active Substance: FINGOLIMOD HYDROCHLORIDE
     Dosage: 1 DOSAGE FORM, QD, FOR 7 DAYS
     Route: 048
     Dates: start: 202203, end: 202203
  10. GILENYA [Suspect]
     Active Substance: FINGOLIMOD HYDROCHLORIDE
     Dosage: 1 DOSAGE FORM, QOD, FOR 7 DAYS
     Route: 048
     Dates: start: 202203
  11. SOLUPRED [Concomitant]
     Indication: Product used for unknown indication
     Dosage: STARTED 3 YEARS AGO, BID
     Route: 048
     Dates: end: 202206
  12. OMEGA 3 [Concomitant]
     Active Substance: CAPSAICIN
     Indication: Nervous system disorder
     Dosage: 1 DOSAGE FORM, QD, FOR 1 MONTH
     Route: 065
     Dates: start: 2020, end: 2020
  13. BENFOTIAMINE\CYANOCOBALAMIN\PYRIDOXINE HYDROCHLORIDE [Concomitant]
     Active Substance: BENFOTIAMINE\CYANOCOBALAMIN\PYRIDOXINE HYDROCHLORIDE
     Indication: Nervous system disorder
     Dosage: 1 DOSAGE FORM, QD, FOR 1 MONTH
     Route: 065
     Dates: start: 2020, end: 2020

REACTIONS (4)
  - Multiple sclerosis relapse [Recovered/Resolved]
  - Loss of consciousness [Recovered/Resolved]
  - Balance disorder [Not Recovered/Not Resolved]
  - Off label use [Unknown]

NARRATIVE: CASE EVENT DATE: 20140101
